FAERS Safety Report 6643189-6 (Version None)
Quarter: 2010Q1

REPORT INFORMATION
  Report Type: 
  Country: None (occurrence: None)
  Receive Date: 20100319
  Receipt Date: 20100315
  Transmission Date: 20100710
  Serious: Yes (Death, Hospitalization, Other)
  Sender: FDA-Public Use
  Company Number: PHHY2010JP13356

PATIENT
  Sex: Female

DRUGS (4)
  1. DIOVAN [Suspect]
     Indication: HYPERTENSION
     Dosage: 80 MG, QD
     Route: 048
     Dates: start: 20090904
  2. PILSICAINIDE HYDROCHLORIDE [Concomitant]
     Dosage: 150 MG, UNK
     Route: 048
     Dates: start: 20071124
  3. FLUVASTATIN [Concomitant]
     Dosage: 30 MG, UNK
     Route: 048
     Dates: start: 20071114
  4. NITRAZEPAM [Concomitant]
     Dosage: 5 MG, UNK
     Route: 048
     Dates: start: 20071207

REACTIONS (4)
  - COMPLETED SUICIDE [None]
  - JOINT INJURY [None]
  - SUICIDE ATTEMPT [None]
  - SUTURE INSERTION [None]
